FAERS Safety Report 6532436-7 (Version None)
Quarter: 2010Q1

REPORT INFORMATION
  Report Type: 
  Country: None (occurrence: None)
  Receive Date: 20100108
  Receipt Date: 20091230
  Transmission Date: 20100710
  Serious: Yes (Other)
  Sender: FDA-Public Use
  Company Number: US-ELI_LILLY_AND_COMPANY-US200912006244

PATIENT
  Sex: Male

DRUGS (4)
  1. FORTEO [Suspect]
     Dosage: 20 UG, DAILY (1/D)
     Dates: start: 20091108
  2. VALIUM [Concomitant]
  3. ANTIHISTAMINES [Concomitant]
  4. ANALGESICS [Concomitant]

REACTIONS (5)
  - CONFUSIONAL STATE [None]
  - FEAR [None]
  - MOVEMENT DISORDER [None]
  - SPINAL FRACTURE [None]
  - TOOTH DISORDER [None]
